FAERS Safety Report 6318803-5 (Version None)
Quarter: 2009Q3

REPORT INFORMATION
  Report Type: 
  Country: None (occurrence: None)
  Receive Date: 20090821
  Receipt Date: 20090811
  Transmission Date: 20100115
  Serious: Yes (Life-Threatening, Hospitalization)
  Sender: FDA-Public Use
  Company Number: DE-ABBOTT-09P-062-0582686-00

PATIENT
  Sex: Female

DRUGS (6)
  1. ERGENYL TABLETS [Suspect]
     Indication: SUICIDE ATTEMPT
     Dosage: 1 DAY- TIME TO ONSET: A FEW HOURS
     Route: 048
     Dates: start: 20090621, end: 20090621
  2. MIRTAZEPIN [Suspect]
     Indication: SUICIDE ATTEMPT
     Dosage: 1 DAY- TIME TO ONSET: A FEW HOURS
     Route: 048
     Dates: start: 20090621, end: 20090621
  3. MELPERON [Suspect]
     Indication: SUICIDE ATTEMPT
     Dosage: 1 DAY- TIME TO ONSET: A FEW HOURS
     Dates: start: 20090621, end: 20090621
  4. SIMVASTATIN [Suspect]
     Indication: SUICIDE ATTEMPT
     Dosage: 1 DAY- TIME TO ONSET: A FEW HOURS
     Dates: start: 20090621, end: 20090621
  5. ACETYLSALICYLIC ACID ENTERIC COATED [Suspect]
     Indication: SUICIDE ATTEMPT
     Dosage: 1DAY- TIME TO ONSET: A FEW HOURS
     Dates: start: 20090621, end: 20090621
  6. OLANZAPIN [Suspect]
     Indication: SUICIDE ATTEMPT
     Dosage: 1 DAY- TIME TO ONSET: A FEW HOURS
     Dates: start: 20090621, end: 20090621

REACTIONS (3)
  - CARDIOVASCULAR DISORDER [None]
  - MULTIPLE DRUG OVERDOSE INTENTIONAL [None]
  - VENTRICULAR TACHYCARDIA [None]
